FAERS Safety Report 18593491 (Version 2)
Quarter: 2020Q4

REPORT INFORMATION
  Report Type: Spontaneous
  Country: US (occurrence: US)
  Receive Date: 20201208
  Receipt Date: 20201221
  Transmission Date: 20210114
  Serious: No
  Sender: FDA-Public Use
  Company Number: US-AMGEN-USASP2020199207

PATIENT
  Age: 83 Year
  Sex: Female

DRUGS (12)
  1. DULOXETINE. [Concomitant]
     Active Substance: DULOXETINE
  2. VITAMIN D [COLECALCIFEROL] [Concomitant]
     Active Substance: CHOLECALCIFEROL
  3. MYRBETRIQ [Concomitant]
     Active Substance: MIRABEGRON
  4. OTEZLA [Suspect]
     Active Substance: APREMILAST
     Indication: PSORIATIC ARTHROPATHY
     Dosage: 30 MILLIGRAM, BID
     Route: 048
     Dates: start: 202004, end: 20201125
  5. ROSUVASTATIN. [Concomitant]
     Active Substance: ROSUVASTATIN
  6. ZINC SULFATE. [Concomitant]
     Active Substance: ZINC SULFATE
  7. LISINOPRIL. [Concomitant]
     Active Substance: LISINOPRIL
  8. FERROUS SULFATE. [Concomitant]
     Active Substance: FERROUS SULFATE
  9. VITAMIN C [Concomitant]
     Active Substance: ASCORBIC ACID
  10. ZOLPIDEM [Concomitant]
     Active Substance: ZOLPIDEM TARTRATE
  11. ONDANSETRON [Concomitant]
     Active Substance: ONDANSETRON
  12. METFORMIN [Concomitant]
     Active Substance: METFORMIN HYDROCHLORIDE

REACTIONS (5)
  - Therapy non-responder [Unknown]
  - Impaired quality of life [Recovered/Resolved]
  - Loss of personal independence in daily activities [Recovered/Resolved]
  - Diarrhoea [Recovered/Resolved]
  - Nausea [Recovered/Resolved]

NARRATIVE: CASE EVENT DATE: 202004
